FAERS Safety Report 18691077 (Version 5)
Quarter: 2022Q3

REPORT INFORMATION
  Report Type: Spontaneous
  Country: CA (occurrence: CA)
  Receive Date: 20210101
  Receipt Date: 20220923
  Transmission Date: 20221027
  Serious: Yes (Hospitalization, Other)
  Sender: FDA-Public Use
  Company Number: CA-ACCORD-212686

PATIENT
  Age: 22 Year
  Sex: Female

DRUGS (5)
  1. MYCOPHENOLATE MOFETIL [Suspect]
     Active Substance: MYCOPHENOLATE MOFETIL
     Indication: Immunosuppression
  2. TACROLIMUS [Interacting]
     Active Substance: TACROLIMUS
     Indication: Immunosuppression
     Dosage: FROM 9 TO 11 MG ORALLY DAILY, DECREASED TO 3 MG DAILY
     Route: 048
  3. ERYTHROMYCIN [Interacting]
     Active Substance: ERYTHROMYCIN
     Indication: Premature labour
  4. PREDNISONE [Suspect]
     Active Substance: PREDNISONE
     Indication: Immunosuppression
     Dosage: INCREASED TO 20 MG DAILY, MAXIMIZE MAINTENANCE DOSE
  5. AZATHIOPRINE [Suspect]
     Active Substance: AZATHIOPRINE
     Indication: Immunosuppression

REACTIONS (7)
  - Drug level increased [Recovered/Resolved]
  - Drug interaction [Unknown]
  - Acute kidney injury [Recovered/Resolved]
  - Maternal exposure during pregnancy [Unknown]
  - Microangiopathic haemolytic anaemia [Unknown]
  - Pre-eclampsia [Recovered/Resolved]
  - Thrombotic microangiopathy [Recovered/Resolved]
